FAERS Safety Report 6175894-2 (Version None)
Quarter: 2009Q2

REPORT INFORMATION
  Report Type: 
  Country: None (occurrence: None)
  Receive Date: 20090501
  Receipt Date: 20090420
  Transmission Date: 20091009
  Serious: Yes (Death, Life-Threatening)
  Sender: FDA-Public Use
  Company Number: US-PFIZER INC-2009201675

PATIENT
  Sex: Female
  Weight: 82.54 kg

DRUGS (2)
  1. LIPITOR [Suspect]
     Indication: BLOOD CHOLESTEROL INCREASED
     Dosage: UNK
     Dates: start: 20071101
  2. LIPITOR [Suspect]
     Indication: CARDIAC FAILURE CONGESTIVE

REACTIONS (3)
  - BLOOD TRIGLYCERIDES INCREASED [None]
  - DEATH [None]
  - MYOCARDIAL INFARCTION [None]
